FAERS Safety Report 18552847 (Version 1)
Quarter: 2020Q4

REPORT INFORMATION
  Report Type: Spontaneous
  Country: US (occurrence: US)
  Receive Date: 20201127
  Receipt Date: 20201127
  Transmission Date: 20210114
  Serious: Yes (Hospitalization, Other)
  Sender: FDA-Public Use
  Company Number: US-HIKMA PHARMACEUTICALS USA INC.-US-H14001-20-05333

PATIENT
  Age: 58 Year
  Sex: Female

DRUGS (2)
  1. PREDNISONE. [Suspect]
     Active Substance: PREDNISONE
     Indication: PERIORBITAL PAIN
     Route: 048
  2. PREDNISONE. [Suspect]
     Active Substance: PREDNISONE
     Indication: OEDEMA
     Dosage: 1 MG/KG
     Route: 048

REACTIONS (5)
  - Varicella zoster virus infection [Unknown]
  - Iridocyclitis [Recovered/Resolved]
  - Scleritis [Recovered/Resolved]
  - Necrotising retinitis [Recovered/Resolved]
  - Ophthalmic herpes zoster [Unknown]
